FAERS Safety Report 8239876-9 (Version None)
Quarter: 2012Q1

REPORT INFORMATION
  Report Type: 
  Country: None (occurrence: None)
  Receive Date: 20120328
  Receipt Date: 20120319
  Transmission Date: 20120608
  Serious: Yes (Other)
  Sender: FDA-Public Use
  Company Number: PHFR2011GB05458

PATIENT
  Sex: Male

DRUGS (9)
  1. LOPRAZOLAM [Concomitant]
     Dosage: 1 MG, NOCTE PRN
     Route: 048
  2. DIAZEPAM [Concomitant]
     Dosage: 10 MG, NOCTE PRN
  3. CLOZARIL [Suspect]
     Indication: SCHIZOPHRENIA
     Dosage: 225 MG, QHS
     Route: 048
     Dates: start: 19970101
  4. DILTIAZEM HCL [Concomitant]
     Indication: BLOOD PRESSURE INCREASED
     Dosage: 90 MG, DAILY
     Route: 048
     Dates: start: 20110101
  5. ZOLPIDEM [Concomitant]
     Dosage: PRN
  6. CLOZARIL [Suspect]
     Route: 048
     Dates: start: 20010701
  7. BENDROFLUMETHIAZIDE [Concomitant]
     Indication: BLOOD PRESSURE INCREASED
     Dosage: 2.5 MG, DAILY
     Route: 048
     Dates: start: 20110101
  8. SIMBICORT TURBUHALER [Concomitant]
     Indication: ASTHMA
  9. ALBUTEROL [Concomitant]
     Indication: ASTHMA

REACTIONS (7)
  - BLOOD IMMUNOGLOBULIN A INCREASED [None]
  - ALANINE AMINOTRANSFERASE INCREASED [None]
  - BLOOD IMMUNOGLOBULIN M INCREASED [None]
  - RECTAL HAEMORRHAGE [None]
  - INTESTINAL POLYP [None]
  - BODY MASS INDEX INCREASED [None]
  - PLATELET COUNT DECREASED [None]
